FAERS Safety Report 10530433 (Version 1)
Quarter: 2014Q4

REPORT INFORMATION
  Report Type: Spontaneous
  Country: US (occurrence: None)
  Receive Date: 20141017
  Receipt Date: 20141017
  Transmission Date: 20150528
  Serious: Yes (Life-Threatening, Other)
  Sender: FDA-Public Use
  Company Number: 2014SCAL000169

PATIENT
  Age: 23 Year
  Sex: Male

DRUGS (2)
  1. CEFAZEDONE [Concomitant]
     Active Substance: CEFAZEDONE
  2. FAMOTIDINE. [Suspect]
     Active Substance: FAMOTIDINE
     Indication: VARICOCELE
     Route: 042

REACTIONS (4)
  - Coma [None]
  - Anaphylactic reaction [None]
  - Dyspnoea [None]
  - Seizure like phenomena [None]
